FAERS Safety Report 7494557-4 (Version None)
Quarter: 2011Q2

REPORT INFORMATION
  Report Type: 
  Country: None (occurrence: None)
  Receive Date: 20110520
  Receipt Date: 20110512
  Transmission Date: 20111010
  Serious: Yes (Other)
  Sender: FDA-Public Use
  Company Number: PHHY2011BR40926

PATIENT
  Sex: Female
  Weight: 58 kg

DRUGS (2)
  1. KETOPROFEN [Suspect]
     Indication: BACK PAIN
     Dosage: 1 DF, BID
     Route: 054
     Dates: start: 20110401
  2. VOLTAREN [Suspect]
     Indication: BACK PAIN
     Dosage: 1 DF, BID
     Route: 054

REACTIONS (7)
  - FEELING ABNORMAL [None]
  - DIARRHOEA [None]
  - BLOOD PRESSURE DECREASED [None]
  - NAUSEA [None]
  - ABDOMINAL PAIN [None]
  - BONE PAIN [None]
  - BACK PAIN [None]
